FAERS Safety Report 11776302 (Version 7)
Quarter: 2016Q1

REPORT INFORMATION
  Report Type: Spontaneous
  Country: US (occurrence: US)
  Receive Date: 20151125
  Receipt Date: 20160205
  Transmission Date: 20160525
  Serious: Yes (Other)
  Sender: FDA-Public Use
  Company Number: US-PFIZER INC-2015393666

PATIENT
  Age: 74 Year
  Sex: Female
  Weight: 86.17 kg

DRUGS (9)
  1. LASIX [Concomitant]
     Active Substance: FUROSEMIDE
     Dosage: 20 MG, AS NEEDED
     Route: 048
     Dates: start: 20150508
  2. XGEVA [Concomitant]
     Active Substance: DENOSUMAB
     Dosage: UNK
  3. IBRANCE [Suspect]
     Active Substance: PALBOCICLIB
     Dosage: 125 MG, CYCLIC (DAY 1-21 EVERY 28 DAYS)
     Route: 048
     Dates: start: 20151102, end: 20160128
  4. IBRANCE [Suspect]
     Active Substance: PALBOCICLIB
     Indication: BREAST CANCER METASTATIC
     Dosage: 75 MG, DAILY, CYCLIC FOR 21 DAYS
     Route: 048
     Dates: start: 20150306, end: 20150520
  5. IBRANCE [Suspect]
     Active Substance: PALBOCICLIB
     Dosage: UNK
  6. LETROZOLE. [Concomitant]
     Active Substance: LETROZOLE
     Indication: BREAST CANCER
     Dosage: UNK
     Dates: start: 201503, end: 201505
  7. CALCIUM CARBONATE/VITAMIN D3 [Concomitant]
     Dosage: 2 DF, UNK
     Route: 048
  8. ONDANSETRON HCL [Concomitant]
     Active Substance: ONDANSETRON HYDROCHLORIDE
     Indication: NAUSEA
     Dosage: 8 MG, AS NEEDED (TAKE 1 PO Q8H PRN)
     Route: 048
     Dates: start: 20140407
  9. PEPCID [Concomitant]
     Active Substance: FAMOTIDINE
     Dosage: UNK

REACTIONS (21)
  - Arthritis [Unknown]
  - Nausea [Recovered/Resolved]
  - Fatigue [Unknown]
  - Anaemia [Unknown]
  - White blood cell count decreased [Unknown]
  - Disease progression [Unknown]
  - Hepatic enzyme increased [Not Recovered/Not Resolved]
  - Cytopenia [Not Recovered/Not Resolved]
  - Abdominal discomfort [Unknown]
  - Fluid retention [Unknown]
  - Dyspnoea [Unknown]
  - Oropharyngeal pain [Unknown]
  - Arthralgia [Unknown]
  - Thrombocytopenia [Unknown]
  - Leukopenia [Unknown]
  - Breast cancer metastatic [Unknown]
  - Weight increased [Unknown]
  - Constipation [Unknown]
  - Abdominal pain [Unknown]
  - Dizziness [Unknown]
  - Diplopia [Unknown]

NARRATIVE: CASE EVENT DATE: 2015
